FAERS Safety Report 4410695-4 (Version None)
Quarter: 2004Q3

REPORT INFORMATION
  Report Type: 
  Country: None (occurrence: None)
  Receive Date: 20040728
  Receipt Date: 20040728
  Transmission Date: 20050211
  Serious: No
  Sender: FDA-Public Use
  Company Number: None

PATIENT

DRUGS (2)
  1. SINEMET [Suspect]
     Dosage: G-TUBE
  2. CARBIDOPA AND LEVODOPA [Suspect]
     Dosage: G-TUBE

REACTIONS (1)
  - PHARMACEUTICAL PRODUCT COMPLAINT [None]
